FAERS Safety Report 18772836 (Version 1)
Quarter: 2021Q1

REPORT INFORMATION
  Report Type: Spontaneous
  Country: GB (occurrence: GB)
  Receive Date: 20210122
  Receipt Date: 20210122
  Transmission Date: 20210419
  Serious: Yes (Other)
  Sender: FDA-Public Use
  Company Number: GB-SUN PHARMACEUTICAL INDUSTRIES LTD-2021RR-277055

PATIENT
  Age: 19 Year
  Sex: Male
  Weight: 84 kg

DRUGS (1)
  1. ISOTRETINOIN. [Suspect]
     Active Substance: ISOTRETINOIN
     Indication: ACNE
     Dosage: 60 ()
     Route: 048
     Dates: start: 20200805

REACTIONS (2)
  - Erectile dysfunction [Unknown]
  - Loss of libido [Unknown]

NARRATIVE: CASE EVENT DATE: 20201203
